FAERS Safety Report 14292716 (Version 2)
Quarter: 2019Q1

REPORT INFORMATION
  Report Type: Spontaneous
  Country: CH (occurrence: CH)
  Receive Date: 20171215
  Receipt Date: 20190227
  Transmission Date: 20190417
  Serious: Yes (Other)
  Sender: FDA-Public Use
  Company Number: CH-ROCHE-2039845

PATIENT
  Age: 65 Year
  Sex: Male

DRUGS (4)
  1. MABTHERA [Suspect]
     Active Substance: RITUXIMAB
     Route: 042
     Dates: start: 20140416, end: 20141013
  2. BENDAMUSTINE [Concomitant]
     Active Substance: BENDAMUSTINE
     Indication: MANTLE CELL LYMPHOMA
  3. MABTHERA [Suspect]
     Active Substance: RITUXIMAB
     Indication: MANTLE CELL LYMPHOMA
     Route: 042
     Dates: start: 201311, end: 201401
  4. GAZYVARO [Suspect]
     Active Substance: OBINUTUZUMAB
     Indication: MANTLE CELL LYMPHOMA
     Route: 042
     Dates: start: 20180109

REACTIONS (8)
  - Cytomegalovirus colitis [Unknown]
  - Diverticulitis [Recovered/Resolved]
  - Pneumonia [Recovered/Resolved]
  - Cytomegalovirus colitis [Unknown]
  - Pneumonitis [Recovered/Resolved]
  - Disease progression [Recovered/Resolved]
  - Urosepsis [Recovered/Resolved]
  - Secondary immunodeficiency [Recovered/Resolved]

NARRATIVE: CASE EVENT DATE: 201405
